FAERS Safety Report 17313214 (Version 1)
Quarter: 2020Q1

REPORT INFORMATION
  Report Type: Spontaneous
  Country: PT (occurrence: PT)
  Receive Date: 20200124
  Receipt Date: 20200124
  Transmission Date: 20200409
  Serious: Yes (Other)
  Sender: FDA-Public Use
  Company Number: PT-AMGEN-PRTSP2020011888

PATIENT

DRUGS (1)
  1. ERENUMAB [Suspect]
     Active Substance: ERENUMAB
     Indication: FOETAL EXPOSURE DURING PREGNANCY
     Dosage: UNK
     Route: 064

REACTIONS (1)
  - Foetal growth restriction [Unknown]
